FAERS Safety Report 5595797-1 (Version None)
Quarter: 2008Q1

REPORT INFORMATION
  Report Type: 
  Country: None (occurrence: None)
  Receive Date: 20080118
  Receipt Date: 20080116
  Transmission Date: 20080703
  Serious: Yes (Other)
  Sender: FDA-Public Use
  Company Number: D0055811A

PATIENT
  Age: 33 Year
  Sex: Female
  Weight: 90 kg

DRUGS (2)
  1. LAMICTAL [Suspect]
     Dosage: 200MG SEE DOSAGE TEXT
     Route: 048
     Dates: start: 20080115, end: 20080115
  2. TREVILOR [Suspect]
     Dosage: 75MG SEE DOSAGE TEXT
     Route: 048
     Dates: start: 20080115, end: 20080115

REACTIONS (4)
  - DEPRESSED LEVEL OF CONSCIOUSNESS [None]
  - GASTROINTESTINAL SOUNDS ABNORMAL [None]
  - INTENTIONAL OVERDOSE [None]
  - SUICIDE ATTEMPT [None]
